FAERS Safety Report 16336717 (Version 1)
Quarter: 2019Q2

REPORT INFORMATION
  Report Type: Spontaneous
  Country: FR (occurrence: FR)
  Receive Date: 20190521
  Receipt Date: 20190521
  Transmission Date: 20190711
  Serious: Yes (Death, Other)
  Sender: FDA-Public Use
  Company Number: FR-BAYER-2019-093668

PATIENT
  Age: 70 Year
  Sex: Male

DRUGS (2)
  1. STIVARGA [Suspect]
     Active Substance: REGORAFENIB
     Indication: HEPATOCELLULAR CARCINOMA
     Dosage: 120 MG, QD
     Dates: start: 201708, end: 201812
  2. NEXAVAR [Suspect]
     Active Substance: SORAFENIB
     Indication: HEPATOCELLULAR CARCINOMA
     Dosage: 400 MG, BID
     Dates: start: 201704, end: 201707

REACTIONS (12)
  - Death [Fatal]
  - Metastases to lymph nodes [None]
  - Off label use [None]
  - Prostate cancer metastatic [None]
  - Musculoskeletal pain [Recovered/Resolved]
  - Diarrhoea [None]
  - Ascites [None]
  - Diarrhoea [None]
  - Hepatocellular carcinoma [None]
  - Ascites [None]
  - Prostate cancer [None]
  - Performance status decreased [None]

NARRATIVE: CASE EVENT DATE: 2017
